FAERS Safety Report 5407538-9 (Version None)
Quarter: 2007Q3

REPORT INFORMATION
  Report Type: 
  Country: None (occurrence: None)
  Receive Date: 20070713
  Receipt Date: 20070427
  Transmission Date: 20080115
  Serious: No
  Sender: FDA-Public Use
  Company Number: 2007SP001544

PATIENT
  Age: 34 Year
  Sex: Female
  Weight: 68.0396 kg

DRUGS (6)
  1. LUNESTA [Suspect]
     Indication: INSOMNIA
     Dosage: 3 MG; HS; ORAL; 3 MG; PRN; ORAL; 6 MG; PRN; ORAL
     Route: 048
     Dates: start: 20060101, end: 20070301
  2. LUNESTA [Suspect]
     Indication: INSOMNIA
     Dosage: 3 MG; HS; ORAL; 3 MG; PRN; ORAL; 6 MG; PRN; ORAL
     Route: 048
     Dates: start: 20070301
  3. LUNESTA [Suspect]
     Indication: INSOMNIA
     Dosage: 3 MG; HS; ORAL; 3 MG; PRN; ORAL; 6 MG; PRN; ORAL
     Route: 048
     Dates: start: 20070301
  4. SEROQUEL [Concomitant]
  5. NEXIUM [Concomitant]
  6. INSULIN [Concomitant]

REACTIONS (3)
  - DRUG TOLERANCE [None]
  - PARASOMNIA [None]
  - SOMNAMBULISM [None]
